FAERS Safety Report 13896079 (Version 1)
Quarter: 2017Q3

REPORT INFORMATION
  Report Type: Spontaneous
  Country: FR (occurrence: FR)
  Receive Date: 20170823
  Receipt Date: 20170823
  Transmission Date: 20171127
  Serious: Yes (Hospitalization, Other)
  Sender: FDA-Public Use
  Company Number: FR-ASTRAZENECA-2017SE85201

PATIENT
  Age: 75 Year
  Sex: Male

DRUGS (13)
  1. NEORAL [Suspect]
     Active Substance: CYCLOSPORINE
     Indication: RENAL TRANSPLANT
     Dosage: 60 MG/DAY THEN 75 MG/DAY
     Route: 048
     Dates: start: 2015
  2. LERCAN [Concomitant]
     Active Substance: LERCANIDIPINE
  3. TAHOR [Concomitant]
     Active Substance: ATORVASTATIN CALCIUM
  4. TEMERIT [Concomitant]
     Active Substance: NEBIVOLOL
  5. PANTOPRAZOLE [Concomitant]
     Active Substance: PANTOPRAZOLE
  6. FOSAMAX [Concomitant]
     Active Substance: ALENDRONATE SODIUM
  7. CASODEX [Suspect]
     Active Substance: BICALUTAMIDE
     Indication: PROSTATE CANCER
     Route: 048
     Dates: start: 201608
  8. ENANTONE LP [Suspect]
     Active Substance: LEUPROLIDE ACETATE
     Indication: PROSTATE CANCER
     Dosage: 11.25 MG PER CYCLE (EVERY 3 MONTHS)
     Route: 030
     Dates: start: 201608
  9. CORTANCYL [Suspect]
     Active Substance: PREDNISONE
     Indication: RENAL TRANSPLANT
     Route: 048
     Dates: start: 2015
  10. WELLVONE [Concomitant]
     Active Substance: ATOVAQUONE
  11. UVEDOSE [Concomitant]
     Active Substance: CHOLECALCIFEROL
  12. CELLCEPT [Concomitant]
     Active Substance: MYCOPHENOLATE MOFETIL\MYCOPHENOLATE MOFETIL HYDROCHLORIDE
  13. LASILIX [Concomitant]
     Active Substance: FUROSEMIDE

REACTIONS (1)
  - Deep vein thrombosis [Recovering/Resolving]

NARRATIVE: CASE EVENT DATE: 20170717
